FAERS Safety Report 23838135 (Version 1)
Quarter: 2024Q2

REPORT INFORMATION
  Report Type: Spontaneous
  Country: US (occurrence: US)
  Receive Date: 20240509
  Receipt Date: 20240509
  Transmission Date: 20240716
  Serious: No
  Sender: FDA-Public Use
  Company Number: US-TEVA-VS-3191734

PATIENT
  Age: 39 Year
  Sex: Male

DRUGS (7)
  1. COPAXONE [Suspect]
     Active Substance: GLATIRAMER ACETATE
     Indication: Product used for unknown indication
     Route: 065
  2. HYDROXYZINE [Concomitant]
     Active Substance: HYDROXYZINE HYDROCHLORIDE
  3. LURASIDONE HYDROCHLORIDE [Concomitant]
     Active Substance: LURASIDONE HYDROCHLORIDE
  4. SEROQUEL [Concomitant]
     Active Substance: QUETIAPINE FUMARATE
  5. SEROQUEL XR [Concomitant]
     Active Substance: QUETIAPINE FUMARATE
  6. GABAPENTIN [Concomitant]
     Active Substance: GABAPENTIN
  7. PHENDIMETRAZINE [Concomitant]
     Active Substance: PHENDIMETRAZINE

REACTIONS (6)
  - Hot flush [Unknown]
  - Pain [Unknown]
  - Myalgia [Unknown]
  - Migraine [Unknown]
  - Influenza like illness [Unknown]
  - Pyrexia [Unknown]
